FAERS Safety Report 10026543 (Version 1)
Quarter: 2014Q1

REPORT INFORMATION
  Report Type: Spontaneous
  Country: US (occurrence: US)
  Receive Date: 20140321
  Receipt Date: 20140321
  Transmission Date: 20141002
  Serious: No
  Sender: FDA-Public Use
  Company Number: US-BIOGENIDEC-2014BI025573

PATIENT
  Age: 52 Year
  Sex: Female

DRUGS (3)
  1. TYSABRI [Suspect]
     Indication: MULTIPLE SCLEROSIS
     Route: 042
     Dates: start: 20071001
  2. TYSABRI [Suspect]
     Indication: MULTIPLE SCLEROSIS
     Route: 042
  3. AMPYRA [Concomitant]
     Indication: MULTIPLE SCLEROSIS
     Dates: start: 20071001

REACTIONS (3)
  - Cellulitis [Not Recovered/Not Resolved]
  - Subcutaneous abscess [Not Recovered/Not Resolved]
  - Skin infection [Not Recovered/Not Resolved]
